FAERS Safety Report 7170901-2 (Version None)
Quarter: 2010Q4

REPORT INFORMATION
  Report Type: 
  Country: None (occurrence: None)
  Receive Date: 20101123
  Receipt Date: 20100722
  Transmission Date: 20110411
  Serious: No
  Sender: FDA-Public Use
  Company Number: 016029

PATIENT
  Sex: Female
  Weight: 63 kg

DRUGS (7)
  1. CIMZIA [Suspect]
     Indication: CROHN'S DISEASE
     Dosage: (400 MG 1X/MONTH SUBCUTANEOUS)
     Route: 058
     Dates: start: 20090201
  2. ASACOL [Concomitant]
  3. CLARITIN /00917501/ [Concomitant]
  4. DIOVAN [Concomitant]
  5. POTASSIUM GLUCONATE TAB [Concomitant]
  6. VIACTIV /00751501/ [Concomitant]
  7. TOCOPHEROL CONCENTRATE CAP [Concomitant]

REACTIONS (2)
  - FEELING ABNORMAL [None]
  - INJECTION SITE HAEMATOMA [None]
